FAERS Safety Report 19925499 (Version 1)
Quarter: 2021Q4

REPORT INFORMATION
  Report Type: Report from Study
  Country: IT (occurrence: IT)
  Receive Date: 20211006
  Receipt Date: 20211006
  Transmission Date: 20220304
  Serious: Yes (Hospitalization)
  Sender: FDA-Public Use
  Company Number: None

PATIENT
  Age: 88 Year
  Sex: Female

DRUGS (6)
  1. QUETIAPINE [Suspect]
     Active Substance: QUETIAPINE
     Indication: Delusion
     Dosage: 1 DOSAGE FORM, QD
     Dates: start: 20210526, end: 20210527
  2. HALOPERIDOL [Suspect]
     Active Substance: HALOPERIDOL
     Indication: Delusion
     Dosage: 20 DOSAGE FORM, QD
     Route: 048
     Dates: start: 20210526, end: 20210527
  3. LORAZEPAM [Concomitant]
     Active Substance: LORAZEPAM
     Dosage: UNK
  4. PANTOPRAZOLE [Concomitant]
     Active Substance: PANTOPRAZOLE
     Dosage: UNK
  5. MELATONIN [Concomitant]
     Active Substance: MELATONIN
     Dosage: UNK
  6. SINEMET [Concomitant]
     Active Substance: CARBIDOPA\LEVODOPA
     Dosage: UNK

REACTIONS (5)
  - Depressed level of consciousness [Recovering/Resolving]
  - Altered state of consciousness [Recovering/Resolving]
  - Sopor [Recovering/Resolving]
  - Somnolence [Recovering/Resolving]
  - Drug abuse [Recovering/Resolving]

NARRATIVE: CASE EVENT DATE: 20210527
